FAERS Safety Report 15695270 (Version 1)
Quarter: 2018Q4

REPORT INFORMATION
  Report Type: Spontaneous
  Country: US (occurrence: US)
  Receive Date: 20181206
  Receipt Date: 20181206
  Transmission Date: 20190205
  Serious: Yes (Other)
  Sender: FDA-Public Use
  Company Number: US-AMGEN-USASP2018171712

PATIENT
  Age: 65 Year
  Sex: Female

DRUGS (1)
  1. REPATHA [Suspect]
     Active Substance: EVOLOCUMAB
     Indication: TYPE IIA HYPERLIPIDAEMIA
     Dosage: 420 MG, QMO
     Route: 065

REACTIONS (7)
  - Haematuria [Unknown]
  - Muscle spasms [Unknown]
  - Polyuria [Unknown]
  - Drug ineffective [Unknown]
  - Asthenia [Unknown]
  - Influenza like illness [Unknown]
  - Neuropathy peripheral [Unknown]
